FAERS Safety Report 9178414 (Version 1)
Quarter: 2012Q4

REPORT INFORMATION
  Report Type: 
  Country: US (occurrence: US)
  Receive Date: 20121029
  Receipt Date: 20121029
  Transmission Date: 20130627
  Serious: Yes (Other)
  Sender: FDA-Public Use
  Company Number: US-PFIZER INC-2012268073

PATIENT
  Age: 42 Year
  Sex: Female
  Weight: 53.06 kg

DRUGS (1)
  1. LIDOCAINE HCL [Suspect]
     Indication: FIBROMYALGIA
     Dosage: UNK
     Dates: start: 2008, end: 2008

REACTIONS (3)
  - Cervix carcinoma [Recovering/Resolving]
  - Osteopenia [Unknown]
  - Nervous system disorder [Unknown]
